FAERS Safety Report 6946626-2 (Version None)
Quarter: 2010Q3

REPORT INFORMATION
  Report Type: 
  Country: None (occurrence: None)
  Receive Date: 20100825
  Receipt Date: 20100816
  Transmission Date: 20110219
  Serious: Yes (Other)
  Sender: FDA-Public Use
  Company Number: JHP201000226

PATIENT
  Age: 23 Year
  Sex: Female

DRUGS (1)
  1. KETALAR [Suspect]
     Indication: DRUG ABUSE
     Dosage: STARTING 2 YEARS PRIOR AT FIRST ON WEEKENDS, THEN DAILY FOR PAST 1 1/2 YEARS, INHALATION
     Route: 055

REACTIONS (1)
  - CYSTITIS NONINFECTIVE [None]
